FAERS Safety Report 17392379 (Version 1)
Quarter: 2020Q1

REPORT INFORMATION
  Report Type: Spontaneous
  Country: US (occurrence: US)
  Receive Date: 20200207
  Receipt Date: 20200207
  Transmission Date: 20200409
  Serious: No
  Sender: FDA-Public Use
  Company Number: NVSC2020US032453

PATIENT
  Age: 78 Year
  Sex: Female
  Weight: 83.91 kg

DRUGS (1)
  1. MEKINIST [Suspect]
     Active Substance: TRAMETINIB DIMETHYL SULFOXIDE
     Indication: PRODUCT USED FOR UNKNOWN INDICATION
     Dosage: 2 MG, QD
     Route: 048
     Dates: start: 20191130

REACTIONS (7)
  - Erythema [Unknown]
  - Vision blurred [Unknown]
  - Dyspnoea [Unknown]
  - Dizziness [Unknown]
  - Acne [Unknown]
  - Myalgia [Unknown]
  - Muscular weakness [Unknown]

NARRATIVE: CASE EVENT DATE: 201912
